FAERS Safety Report 23551704 (Version 1)
Quarter: 2024Q1

REPORT INFORMATION
  Report Type: Spontaneous
  Country: ZA (occurrence: ZA)
  Receive Date: 20240222
  Receipt Date: 20240222
  Transmission Date: 20240410
  Serious: Yes (Hospitalization)
  Sender: FDA-Public Use
  Company Number: ZA-LUPIN HEALTHCARE (UK) LIMITED-2024-01166

PATIENT

DRUGS (10)
  1. AMLODIPINE BESYLATE [Suspect]
     Active Substance: AMLODIPINE BESYLATE
     Indication: Hypertension
     Dosage: UNK (ONE TABLET AT NIGHT)
     Route: 048
  2. LANSOPRAZOLE [Suspect]
     Active Substance: LANSOPRAZOLE
     Indication: Ulcer
     Dosage: 1 DOSAGE FORM, QD (ONE CAPSULE IN THE MORNING)
     Route: 048
  3. AMITRIPTYLINE [Suspect]
     Active Substance: AMITRIPTYLINE
     Indication: Depression
     Dosage: 1 DOSAGE FORM, HS (ONE TABLET AT NIGHT)
     Route: 048
  4. OXAZEPAM [Suspect]
     Active Substance: OXAZEPAM
     Indication: Anxiety
     Dosage: 1 DOSAGE FORM, HS (ONE TABLET AT NIGHT)
     Route: 048
  5. ZOLPIDEM TARTRATE [Suspect]
     Active Substance: ZOLPIDEM TARTRATE
     Indication: Insomnia
     Dosage: 1 DOSAGE FORM, HS (ONE TABLET ONCE AT NIGHT)
     Route: 048
  6. HYDROCHLOROTHIAZIDE [Suspect]
     Active Substance: HYDROCHLOROTHIAZIDE
     Indication: Hypertension
     Dosage: 1 DOSAGE FORM, HS (ONE TABLET AT NIGHT)
     Route: 048
  7. CELEBREX [Suspect]
     Active Substance: CELECOXIB
     Indication: Pain
     Dosage: 1 DOSAGE FORM, QD (ONE CAPSULE ONCE A DAY)
     Route: 048
  8. HYDROCHLOROTHIAZIDE [Suspect]
     Active Substance: HYDROCHLOROTHIAZIDE
     Indication: Hypertension
     Dosage: 1 DOSAGE FORM, QD (ONE TABLET IN THE MORNING)
     Route: 048
  9. CELECOXIB [Suspect]
     Active Substance: CELECOXIB
     Indication: Pain
     Dosage: 1 DOSAGE FORM, QD (ONE CAPSULE DAILY)
     Route: 048
  10. AMOXICILLIN\CLAVULANATE POTASSIUM [Suspect]
     Active Substance: AMOXICILLIN\CLAVULANATE POTASSIUM
     Indication: Product used for unknown indication
     Dosage: 1 DOSAGE FORM, BID (ONE TABLET TWICE A DAY)
     Route: 048

REACTIONS (2)
  - Lung disorder [Unknown]
  - Cardiac disorder [Unknown]
